FAERS Safety Report 6774783-X (Version None)
Quarter: 2010Q2

REPORT INFORMATION
  Report Type: 
  Country: None (occurrence: None)
  Receive Date: 20100617
  Receipt Date: 20100608
  Transmission Date: 20101027
  Serious: Yes (Hospitalization, Other)
  Sender: FDA-Public Use
  Company Number: US-ROCHE-709040

PATIENT
  Sex: Female
  Weight: 50.3 kg

DRUGS (4)
  1. BEVACIZUMAB [Suspect]
     Dosage: DAY 1 AND DAY 15.
     Route: 042
     Dates: start: 20100517
  2. GEMCITABINE HCL [Suspect]
     Dosage: DAY 1 AND 15.
     Route: 042
  3. CARBOPLATIN [Suspect]
     Dosage: DAY 1 AND 15.
     Route: 042
  4. VANCOMYCIN [Concomitant]

REACTIONS (7)
  - ABDOMINAL PAIN [None]
  - ASCITES [None]
  - ASTHENIA [None]
  - HYDRONEPHROSIS [None]
  - PELVIC VENOUS THROMBOSIS [None]
  - PYREXIA [None]
  - WHITE BLOOD CELL COUNT DECREASED [None]
